FAERS Safety Report 6067827-4 (Version None)
Quarter: 2009Q1

REPORT INFORMATION
  Report Type: 
  Country: None (occurrence: None)
  Receive Date: 20090202
  Receipt Date: 20090122
  Transmission Date: 20090719
  Serious: Yes (Other)
  Sender: FDA-Public Use
  Company Number: 2009AP000337

PATIENT
  Sex: Female

DRUGS (1)
  1. PRAVASTATIN SODIUM [Suspect]
     Dosage: PO
     Route: 048

REACTIONS (2)
  - AGEUSIA [None]
  - ANOSMIA [None]
